FAERS Safety Report 7864302-9 (Version None)
Quarter: 2011Q4

REPORT INFORMATION
  Report Type: 
  Country: None (occurrence: None)
  Receive Date: 20111028
  Receipt Date: 20110513
  Transmission Date: 20120403
  Serious: No
  Sender: FDA-Public Use
  Company Number: US-GLAXOSMITHKLINE-A0927305A

PATIENT
  Age: 75 Year
  Sex: Female

DRUGS (7)
  1. SEREVENT [Suspect]
     Indication: ASTHMA
     Dosage: 1PUFF TWICE PER DAY
     Route: 055
     Dates: start: 19980101
  2. SINGULAIR [Concomitant]
  3. OMEPRAZOLE [Concomitant]
  4. LEVOTHYROXINE SODIUM [Concomitant]
  5. FLOVENT [Concomitant]
  6. BUMETANIDE [Concomitant]
  7. AMOXICILLIN [Concomitant]

REACTIONS (3)
  - NERVOUSNESS [None]
  - PRODUCT QUALITY ISSUE [None]
  - DIZZINESS [None]
